FAERS Safety Report 26121737 (Version 1)
Quarter: 2025Q4

REPORT INFORMATION
  Report Type: Spontaneous
  Country: US (occurrence: US)
  Receive Date: 20251204
  Receipt Date: 20251204
  Transmission Date: 20260118
  Serious: No
  Sender: MYLAN
  Company Number: US-MYLANLABS-2025M1101025

PATIENT
  Age: 78 Year
  Sex: Female

DRUGS (4)
  1. ESTRADIOL TRANSDERMAL SYSTEM [Suspect]
     Active Substance: ESTRADIOL
     Indication: Ill-defined disorder
     Dosage: 0.025 MILLIGRAM, QD (PER DAY, ONCE WEEKLY)
     Dates: start: 20251024
  2. ESTRADIOL TRANSDERMAL SYSTEM [Suspect]
     Active Substance: ESTRADIOL
     Dosage: 0.025 MILLIGRAM, QD (PER DAY, ONCE WEEKLY)
     Route: 062
     Dates: start: 20251024
  3. ESTRADIOL TRANSDERMAL SYSTEM [Suspect]
     Active Substance: ESTRADIOL
     Dosage: 0.025 MILLIGRAM, QD (PER DAY, ONCE WEEKLY)
     Route: 062
     Dates: start: 20251024
  4. ESTRADIOL TRANSDERMAL SYSTEM [Suspect]
     Active Substance: ESTRADIOL
     Dosage: 0.025 MILLIGRAM, QD (PER DAY, ONCE WEEKLY)
     Dates: start: 20251024

REACTIONS (2)
  - Product use in unapproved indication [Unknown]
  - Product adhesion issue [Unknown]

NARRATIVE: CASE EVENT DATE: 20251024
